FAERS Safety Report 12676960 (Version 1)
Quarter: 2016Q3

REPORT INFORMATION
  Report Type: Spontaneous
  Country: US (occurrence: US)
  Receive Date: 20160823
  Receipt Date: 20160823
  Transmission Date: 20161109
  Serious: Yes (Other)
  Sender: FDA-Public Use
  Company Number: US-TEVA-610989USA

PATIENT
  Sex: Female

DRUGS (1)
  1. CARBIDOPA AND LEVODOPA [Suspect]
     Active Substance: CARBIDOPA\LEVODOPA
     Indication: PARKINSON^S DISEASE
     Dosage: 25 MG / 100 MG
     Route: 065

REACTIONS (5)
  - Drug ineffective [Unknown]
  - Product solubility abnormal [Unknown]
  - Parkinson^s disease [Unknown]
  - Product physical issue [Unknown]
  - Wrong technique in product usage process [Unknown]
